FAERS Safety Report 24202510 (Version 1)
Quarter: 2024Q3

REPORT INFORMATION
  Report Type: Spontaneous
  Country: HR (occurrence: HR)
  Receive Date: 20240813
  Receipt Date: 20240813
  Transmission Date: 20241017
  Serious: Yes (Hospitalization)
  Sender: ORGANON
  Company Number: None

PATIENT
  Age: 36 Year
  Sex: Female
  Weight: 66 kg

DRUGS (4)
  1. ORGALUTRAN [Suspect]
     Active Substance: GANIRELIX ACETATE
     Indication: Prevention of premature ovulation
     Dosage: 250 UG
     Route: 058
     Dates: start: 20240722, end: 20240724
  2. MENOPUR [Concomitant]
     Active Substance: FOLLITROPIN\LUTEINIZING HORMONE
     Indication: In vitro fertilisation
     Dosage: UNK (POWDER AND SOLVENT FOR SOLUTION FOR INJECTION)
  3. GONADORELIN [Concomitant]
     Active Substance: GONADORELIN
     Indication: In vitro fertilisation
     Dosage: UNK
     Route: 058
  4. CHORIOGONADOTROPIN ALFA [Concomitant]
     Active Substance: CHORIOGONADOTROPIN ALFA
     Indication: In vitro fertilisation
     Dosage: UNK
     Route: 058

REACTIONS (2)
  - Premature ovulation [Recovering/Resolving]
  - Drug ineffective [Recovering/Resolving]

NARRATIVE: CASE EVENT DATE: 20240725
